FAERS Safety Report 7497881-4 (Version None)
Quarter: 2011Q2

REPORT INFORMATION
  Report Type: 
  Country: None (occurrence: None)
  Receive Date: 20110524
  Receipt Date: 20110412
  Transmission Date: 20111010
  Serious: Yes (Hospitalization)
  Sender: FDA-Public Use
  Company Number: US-BAYER-201025552NA

PATIENT
  Age: 17 Year
  Sex: Female
  Weight: 65.76 kg

DRUGS (1)
  1. YASMIN [Suspect]
     Indication: ACNE
     Dosage: UNK UNK, UNK
     Route: 048
     Dates: start: 20040101, end: 20090728

REACTIONS (5)
  - ABDOMINAL PAIN UPPER [None]
  - PROCEDURAL PAIN [None]
  - VOMITING [None]
  - CHOLELITHIASIS [None]
  - PROCEDURAL VOMITING [None]
